FAERS Safety Report 16908680 (Version 1)
Quarter: 2019Q4

REPORT INFORMATION
  Report Type: Report from Study
  Country: US (occurrence: US)
  Receive Date: 20191011
  Receipt Date: 20191011
  Transmission Date: 20200122
  Serious: Yes (Hospitalization)
  Sender: FDA-Public Use
  Company Number: US-JNJFOC-20190615752

PATIENT
  Age: 59 Year
  Sex: Male

DRUGS (9)
  1. SYNTHROID [Concomitant]
     Active Substance: LEVOTHYROXINE SODIUM
  2. BENADRYL [Concomitant]
     Active Substance: DIPHENHYDRAMINE HYDROCHLORIDE
  3. XANAX [Concomitant]
     Active Substance: ALPRAZOLAM
  4. NUVIGIL [Concomitant]
     Active Substance: ARMODAFINIL
  5. GABAPENTIN. [Concomitant]
     Active Substance: GABAPENTIN
  6. HYDROCODONE/ACETAMINOPHEN [Concomitant]
     Active Substance: ACETAMINOPHEN\HYDROCODONE
  7. IMBRUVICA [Suspect]
     Active Substance: IBRUTINIB
     Indication: CHRONIC LYMPHOCYTIC LEUKAEMIA
     Dosage: 420 MG, QD
     Route: 048
     Dates: start: 20190531
  8. NORCO [Concomitant]
     Active Substance: ACETAMINOPHEN\HYDROCODONE BITARTRATE
  9. AMBIEN [Concomitant]
     Active Substance: ZOLPIDEM TARTRATE

REACTIONS (14)
  - Palpitations [Unknown]
  - Nausea [Not Recovered/Not Resolved]
  - Ear pain [Unknown]
  - Skin burning sensation [Recovering/Resolving]
  - Abdominal pain [Not Recovered/Not Resolved]
  - Asthenia [Not Recovered/Not Resolved]
  - Asthenia [Unknown]
  - Stomatitis [Recovering/Resolving]
  - Vertigo [Recovering/Resolving]
  - Oropharyngeal pain [Unknown]
  - Diarrhoea [Not Recovered/Not Resolved]
  - Hypertension [Recovering/Resolving]
  - Abnormal weight gain [Unknown]
  - Fatigue [Not Recovered/Not Resolved]

NARRATIVE: CASE EVENT DATE: 20190531
